FAERS Safety Report 6705246-5 (Version None)
Quarter: 2010Q2

REPORT INFORMATION
  Report Type: 
  Country: None (occurrence: None)
  Receive Date: 20100430
  Receipt Date: 20100419
  Transmission Date: 20101027
  Serious: Yes (Hospitalization, Other)
  Sender: FDA-Public Use
  Company Number: US-ELI_LILLY_AND_COMPANY-US201004006966

PATIENT
  Age: 80 Year
  Sex: Female

DRUGS (1)
  1. CYMBALTA [Suspect]
     Indication: SCHIZOPHRENIA
     Dosage: 60 MG, DAILY (1/D)
     Dates: start: 20080101

REACTIONS (3)
  - BREAST CANCER [None]
  - OFF LABEL USE [None]
  - SURGERY [None]
